FAERS Safety Report 6634890-9 (Version None)
Quarter: 2010Q1

REPORT INFORMATION
  Report Type: 
  Country: None (occurrence: None)
  Receive Date: 20100311
  Receipt Date: 20100311
  Transmission Date: 20100710
  Serious: Yes (Life-Threatening, Hospitalization, Other)
  Sender: FDA-Public Use
  Company Number: None

PATIENT
  Sex: Female
  Weight: 51.2565 kg

DRUGS (2)
  1. PROVIGIL [Suspect]
     Indication: FATIGUE
     Dosage: 1 TABLET EVERY MORNING ONCE/DAY PO
     Route: 048
     Dates: start: 20080308, end: 20090329
  2. PROVIGIL [Suspect]
     Indication: FATIGUE
     Dosage: 1 TABLET EVERY MORNING ONCE/DAY PO
     Route: 048
     Dates: start: 20100224, end: 20100224

REACTIONS (7)
  - CARDIOMEGALY [None]
  - CARDIOMYOPATHY [None]
  - CHEST PAIN [None]
  - HEART RATE INCREASED [None]
  - HYPOTENSION [None]
  - PALPITATIONS [None]
  - PRODUCT SUBSTITUTION ISSUE [None]
